FAERS Safety Report 8237496 (Version 3)
Quarter: 2014Q1

REPORT INFORMATION
  Report Type: Report from Study
  Country: DE (occurrence: DE)
  Receive Date: 20111109
  Receipt Date: 20140208
  Transmission Date: 20141002
  Serious: Yes (Hospitalization)
  Sender: FDA-Public Use
  Company Number: DE-AMGEN-DEUCT2011057822

PATIENT
  Age: 59 Year
  Sex: Male

DRUGS (4)
  1. PANITUMUMAB [Suspect]
     Indication: GASTRIC CANCER
     Dosage: 9 MG/KG, UNK
     Route: 042
     Dates: start: 20110930
  2. EPIRUBICIN [Concomitant]
     Indication: GASTRIC CANCER
     Dosage: 50 MG/M2, UNK
     Route: 042
     Dates: start: 20110930
  3. CISPLATIN [Concomitant]
     Indication: GASTRIC CANCER
     Dosage: 60 MG/M2, UNK
     Route: 042
     Dates: start: 20110930
  4. CAPECITABINE [Concomitant]
     Indication: GASTRIC CANCER
     Dosage: 1250 MG/M2, UNK
     Route: 048
     Dates: start: 20110930

REACTIONS (2)
  - Venous thrombosis [Recovered/Resolved with Sequelae]
  - Pulmonary embolism [Recovered/Resolved with Sequelae]
